FAERS Safety Report 9055645 (Version 2)
Quarter: 2013Q2

REPORT INFORMATION
  Report Type: Spontaneous
  Country: FR (occurrence: FR)
  Receive Date: 20130206
  Receipt Date: 20130624
  Transmission Date: 20140414
  Serious: Yes (Death, Hospitalization)
  Sender: FDA-Public Use
  Company Number: FR-PFIZER INC-2013041558

PATIENT
  Age: 49 Year
  Sex: Male

DRUGS (12)
  1. LYRICA [Suspect]
     Dosage: UNK
     Dates: start: 20121106
  2. TAXOTERE [Suspect]
     Indication: LUNG ADENOCARCINOMA
     Dosage: 144 MG, UNK
     Dates: start: 20121105
  3. SOLUPRED [Concomitant]
     Dosage: UNK
  4. PRIMPERAN [Concomitant]
     Dosage: UNK
  5. ACUPAN [Concomitant]
     Dosage: UNK
  6. CERTICAN [Concomitant]
     Dosage: UNK
  7. DICODIN [Concomitant]
     Dosage: UNK
  8. PARACETAMOL [Concomitant]
     Dosage: UNK
  9. NEBIVOLOL [Concomitant]
     Dosage: UNK
  10. VASTEN [Concomitant]
     Dosage: UNK
  11. KARDEGIC [Concomitant]
     Dosage: UNK
  12. INEXIUM [Concomitant]
     Dosage: UNK

REACTIONS (3)
  - Cardio-respiratory arrest [Fatal]
  - Renal tubular disorder [Recovered/Resolved]
  - Renal failure acute [Recovered/Resolved]
